FAERS Safety Report 13069140 (Version 5)
Quarter: 2017Q1

REPORT INFORMATION
  Report Type: Spontaneous
  Country: US (occurrence: US)
  Receive Date: 20161228
  Receipt Date: 20170324
  Transmission Date: 20170428
  Serious: Yes (Other)
  Sender: FDA-Public Use
  Company Number: US-PFIZER INC-2016590528

PATIENT
  Age: 51 Year
  Sex: Male

DRUGS (6)
  1. PAXIL [Concomitant]
     Active Substance: PAROXETINE HYDROCHLORIDE
     Dosage: UNK
  2. SUTENT [Suspect]
     Active Substance: SUNITINIB MALATE
     Indication: METASTATIC RENAL CELL CARCINOMA
     Dosage: 50 MG, CYCLIC (DAILY, 28 DAYS ON / 14 DAYS OFF)
     Dates: start: 20161213, end: 20161226
  3. DILAUDID [Concomitant]
     Active Substance: HYDROMORPHONE HYDROCHLORIDE
     Dosage: UNK
  4. TENORMIN [Concomitant]
     Active Substance: ATENOLOL
     Dosage: UNK
  5. PROTONIX [Concomitant]
     Active Substance: PANTOPRAZOLE SODIUM
     Dosage: UNK
  6. FENTANYL. [Concomitant]
     Active Substance: FENTANYL
     Dosage: UNK

REACTIONS (14)
  - Dehydration [Unknown]
  - Somnolence [Unknown]
  - Hypophagia [Unknown]
  - Pneumonia [Unknown]
  - Headache [Unknown]
  - Dizziness [Unknown]
  - Chills [Unknown]
  - Fatigue [Unknown]
  - Hypotension [Unknown]
  - Weight decreased [Unknown]
  - Anxiety [Unknown]
  - Neoplasm progression [Unknown]
  - Body temperature decreased [Unknown]
  - Back pain [Unknown]

NARRATIVE: CASE EVENT DATE: 201612
